FAERS Safety Report 4555556-5 (Version None)
Quarter: 2005Q1

REPORT INFORMATION
  Report Type: 
  Country: None (occurrence: None)
  Receive Date: 20050118
  Receipt Date: 20050118
  Transmission Date: 20050727
  Serious: Yes (Other)
  Sender: FDA-Public Use
  Company Number: None

PATIENT
  Age: 56 Year
  Sex: Female
  Weight: 90 kg

DRUGS (6)
  1. NEURONTIN [Suspect]
     Indication: LUMBAR RADICULOPATHY
     Dosage: 600 MG QID PO
     Route: 048
     Dates: start: 20050101
  2. NEURONTIN [Suspect]
     Indication: POST LAMINECTOMY SYNDROME
     Dosage: 600 MG QID PO
     Route: 048
     Dates: start: 20050101
  3. DURAGESIC [Concomitant]
  4. LIDODERM [Concomitant]
  5. LORTAB [Concomitant]
  6. FLEXERIL [Concomitant]

REACTIONS (3)
  - FEELING ABNORMAL [None]
  - NAUSEA [None]
  - PHARMACEUTICAL PRODUCT COMPLAINT [None]
